FAERS Safety Report 8199490-0 (Version None)
Quarter: 2012Q1

REPORT INFORMATION
  Report Type: 
  Country: None (occurrence: None)
  Receive Date: 20120309
  Receipt Date: 20120210
  Transmission Date: 20120608
  Serious: Yes (Life-Threatening, Hospitalization)
  Sender: FDA-Public Use
  Company Number: CHPA2012US004293

PATIENT
  Age: 73 Year
  Sex: Female

DRUGS (2)
  1. EXCEDRIN (MIGRAINE) [Suspect]
     Indication: MIGRAINE
     Dosage: 1 DF, QD
     Route: 048
     Dates: end: 20120122
  2. DRUG THERAPY NOS [Concomitant]

REACTIONS (5)
  - UNDERDOSE [None]
  - SPEECH DISORDER [None]
  - PYREXIA [None]
  - THINKING ABNORMAL [None]
  - INFLUENZA LIKE ILLNESS [None]
